FAERS Safety Report 19461852 (Version 1)
Quarter: 2021Q2

REPORT INFORMATION
  Report Type: Spontaneous
  Country: US (occurrence: US)
  Receive Date: 20210625
  Receipt Date: 20210625
  Transmission Date: 20210717
  Serious: Yes (Hospitalization)
  Sender: FDA-Public Use
  Company Number: US-ELI_LILLY_AND_COMPANY-US202106005681

PATIENT
  Age: 71 Year
  Sex: Male

DRUGS (1)
  1. BAMLANIVIMAB 700MG [Suspect]
     Active Substance: BAMLANIVIMAB
     Indication: COVID-19
     Dosage: 700 MG, SINGLE
     Route: 042
     Dates: start: 20201210, end: 20201210

REACTIONS (4)
  - Dyspnoea exertional [Unknown]
  - Blood pressure increased [Unknown]
  - Malaise [Unknown]
  - Hypoxia [Unknown]

NARRATIVE: CASE EVENT DATE: 20201210
